FAERS Safety Report 15043190 (Version 1)
Quarter: 2018Q2

REPORT INFORMATION
  Report Type: Spontaneous
  Country: US (occurrence: US)
  Receive Date: 20180531
  Receipt Date: 20180531
  Transmission Date: 20180711
  Serious: Yes (Other)
  Sender: FDA-Public Use
  Company Number: None

PATIENT
  Age: 70 Year
  Sex: Female
  Weight: 77.11 kg

DRUGS (7)
  1. LIPITOR [Concomitant]
     Active Substance: ATORVASTATIN CALCIUM
  2. DICLOFENAC [Concomitant]
     Active Substance: DICLOFENAC
  3. CIPROFLOXACIN 500MG TABLETS [Suspect]
     Active Substance: CIPROFLOXACIN
     Indication: URINARY TRACT INFECTION
     Dosage: ?          QUANTITY:1 DF DOSAGE FORM;?
     Route: 048
     Dates: start: 20180504, end: 20180505
  4. XANAX [Concomitant]
     Active Substance: ALPRAZOLAM
  5. TRAMADOL. [Concomitant]
     Active Substance: TRAMADOL
  6. TYLENOL [Concomitant]
     Active Substance: ACETAMINOPHEN
  7. ADVIL [Concomitant]
     Active Substance: IBUPROFEN

REACTIONS (6)
  - Dizziness [None]
  - Diarrhoea [None]
  - Nausea [None]
  - Asthenia [None]
  - Dehydration [None]
  - Faeces discoloured [None]

NARRATIVE: CASE EVENT DATE: 20180505
